FAERS Safety Report 5289049-7 (Version None)
Quarter: 2007Q1

REPORT INFORMATION
  Report Type: 
  Country: None (occurrence: None)
  Receive Date: 20070118
  Receipt Date: 20061003
  Transmission Date: 20070707
  Serious: Yes (Other)
  Sender: FDA-Public Use
  Company Number: HQWYE667305OCT06

PATIENT
  Sex: Female

DRUGS (1)
  1. ADVIL PM [Suspect]
     Indication: INSOMNIA
     Dosage: 1 CAPLET X 1, ORAL
     Route: 048
     Dates: start: 20061002, end: 20061002

REACTIONS (2)
  - DYSPHAGIA [None]
  - THROAT IRRITATION [None]
